FAERS Safety Report 10208442 (Version 1)
Quarter: 2014Q2

REPORT INFORMATION
  Report Type: Spontaneous
  Country: US (occurrence: US)
  Receive Date: 20140530
  Receipt Date: 20140530
  Transmission Date: 20141212
  Serious: Yes (Other)
  Sender: FDA-Public Use
  Company Number: US-GLAXOSMITHKLINE-A1074384A

PATIENT
  Age: 72 Year
  Sex: Female

DRUGS (4)
  1. MUPIROCIN OINTMENT USP 2% [Suspect]
     Indication: ANTIBIOTIC PROPHYLAXIS
     Route: 065
     Dates: end: 201401
  2. MUPIROCIN OINTMENT USP 2% [Suspect]
     Indication: ANTIBIOTIC PROPHYLAXIS
     Route: 065
     Dates: end: 201401
  3. HRT [Concomitant]
  4. SPIRIVA [Concomitant]

REACTIONS (5)
  - Staphylococcal infection [Not Recovered/Not Resolved]
  - Respiratory tract infection [Not Recovered/Not Resolved]
  - Drug ineffective [Unknown]
  - Product substitution issue [None]
  - Sinusitis [None]
